FAERS Safety Report 6875416-4 (Version None)
Quarter: 2010Q3

REPORT INFORMATION
  Report Type: 
  Country: None (occurrence: None)
  Receive Date: 20100727
  Receipt Date: 20100715
  Transmission Date: 20110219
  Serious: Yes (Hospitalization)
  Sender: FDA-Public Use
  Company Number: US-JNJFOC-20100403532

PATIENT
  Sex: Male
  Weight: 3.95 kg

DRUGS (4)
  1. CHILDREN'S TYLENOL SUSPENSION [Suspect]
     Indication: PYREXIA
     Dosage: STARTED PRIOR TO 29-AUG-2009
     Route: 048
  2. CHILDREN'S TYLENOL SUSPENSION [Suspect]
     Indication: PAIN
     Dosage: STARTED PRIOR TO 29-AUG-2009
     Route: 048
  3. BENADRYL [Concomitant]
     Indication: RASH
  4. PREDNISOLONE [Concomitant]
     Indication: RASH
     Dosage: STARTED PRIOR TO 29-AUG-2009

REACTIONS (2)
  - CELLULITIS STAPHYLOCOCCAL [None]
  - PRODUCT QUALITY ISSUE [None]
